FAERS Safety Report 4526848-0 (Version None)
Quarter: 2004Q4

REPORT INFORMATION
  Report Type: 
  Country: None (occurrence: None)
  Receive Date: 20041213
  Receipt Date: 20041126
  Transmission Date: 20050328
  Serious: Yes (Hospitalization)
  Sender: FDA-Public Use
  Company Number: DSA_25457_2004

PATIENT
  Age: 81 Year
  Sex: Female

DRUGS (6)
  1. ENALAPRIL MALEATE AND HYDROCHLOROTHIAZIDE [Suspect]
     Indication: HYPERTENSION
     Dosage: 1 TAB QD PO
     Route: 048
     Dates: end: 20041011
  2. ATENOLOL [Concomitant]
  3. LANACRIST [Concomitant]
  4. PLENDIL [Concomitant]
  5. LASIX /SCH/ [Concomitant]
  6. METFORMIN HCL [Concomitant]

REACTIONS (4)
  - DIARRHOEA [None]
  - GASTROENTERITIS [None]
  - RENAL FAILURE ACUTE [None]
  - VOMITING [None]
